FAERS Safety Report 12875735 (Version 1)
Quarter: 2016Q4

REPORT INFORMATION
  Report Type: Spontaneous
  Country: US (occurrence: US)
  Receive Date: 20161024
  Receipt Date: 20161024
  Transmission Date: 20170207
  Serious: No
  Sender: FDA-Public Use
  Company Number: US-VERTEX PHARMACEUTICALS-2016-005931

PATIENT
  Sex: Male

DRUGS (18)
  1. PROTONIX [Concomitant]
     Active Substance: PANTOPRAZOLE SODIUM
  2. CALCIUM CARBONATE. [Concomitant]
     Active Substance: CALCIUM CARBONATE
     Dosage: 1 DF, TID
     Route: 048
  3. ZOLOFT [Concomitant]
     Active Substance: SERTRALINE HYDROCHLORIDE
     Dosage: 1 DF, QD
     Route: 048
  4. HYPERSAL [Concomitant]
     Dosage: 1 VIAL VIA INHALATION, BID
     Route: 055
  5. BETHKIS [Concomitant]
     Active Substance: TOBRAMYCIN
     Dosage: INHALE 4 ML VIA NEBULIZER, BID, 28 DAYS ON AND 28 DAYS OFF
     Route: 055
  6. KLONOPIN [Concomitant]
     Active Substance: CLONAZEPAM
     Dosage: TAKE 1/2, BID
     Route: 048
  7. AQUADEKS [Concomitant]
     Active Substance: MINERALS\VITAMINS
     Dosage: 1 DF, BID
     Route: 048
  8. FLONASE [Concomitant]
     Active Substance: FLUTICASONE PROPIONATE
     Dosage: INHALE 2 SPRAYS, QD
     Route: 055
  9. COLISTIN [Concomitant]
     Active Substance: COLISTIN
     Dosage: INHALE 1 AMPOULE, BID
     Route: 055
  10. AZITHROMYCIN ANHYDROUS. [Concomitant]
     Active Substance: AZITHROMYCIN ANHYDROUS
     Dosage: 1 DF, TID, ON MONDAY, WEDNESDAY AND FRIDAY
     Route: 048
  11. MUCINEX [Concomitant]
     Active Substance: GUAIFENESIN
     Dosage: 1 DF, QD
     Route: 048
  12. CREON [Concomitant]
     Active Substance: PANCRELIPASE AMYLASE\PANCRELIPASE LIPASE\PANCRELIPASE PROTEASE
     Dosage: 3 DF, TID
     Route: 048
  13. ALBUTEROL. [Concomitant]
     Active Substance: ALBUTEROL
     Dosage: INHALE 1 BY NEBULIZER, EVERY 4 HOUR, PRN
     Route: 055
  14. VENTOLIN HFA [Concomitant]
     Active Substance: ALBUTEROL SULFATE
     Dosage: INHALE 2 PUFFS, EVERY 4-6 HOURS, PRN
     Route: 055
  15. VITAMIN D3 [Concomitant]
     Active Substance: CHOLECALCIFEROL
     Dosage: 1 DF, QD
     Route: 048
  16. ORKAMBI [Suspect]
     Active Substance: IVACAFTOR\LUMACAFTOR
     Indication: CYSTIC FIBROSIS
     Dosage: UNK
     Route: 048
     Dates: start: 20160606
  17. SYMBICORT [Concomitant]
     Active Substance: BUDESONIDE\FORMOTEROL FUMARATE DIHYDRATE
     Dosage: INHALE 2 PUFFS, BID
     Route: 055
  18. PULMOZYME [Concomitant]
     Active Substance: DORNASE ALFA
     Dosage: 2.5 MG, QD
     Route: 055

REACTIONS (1)
  - Drug screen false positive [Recovered/Resolved]
